FAERS Safety Report 5640615-6 (Version None)
Quarter: 2008Q1

REPORT INFORMATION
  Report Type: 
  Country: None (occurrence: None)
  Receive Date: 20080227
  Receipt Date: 20080215
  Transmission Date: 20080703
  Serious: Yes (Hospitalization, Disabling)
  Sender: FDA-Public Use
  Company Number: US-WYE-H01343507

PATIENT
  Sex: Female
  Weight: 53.57 kg

DRUGS (14)
  1. EFFEXOR XR [Suspect]
     Indication: DEPRESSION
     Route: 048
     Dates: start: 20040101, end: 20071115
  2. EFFEXOR XR [Suspect]
     Dosage: 150 MG DAILY, TAPERING OFF
     Route: 048
     Dates: start: 20071116, end: 20071130
  3. LAMICTAL [Concomitant]
     Dosage: UNKNOWN
  4. INSULIN [Concomitant]
     Indication: DIABETES MELLITUS
     Dosage: UNKNOWN
  5. ZETIA [Concomitant]
     Indication: BLOOD CHOLESTEROL INCREASED
     Dosage: UNKNOWN
  6. ACETYLSALICYLIC ACID [Concomitant]
     Dosage: UNKNOWN
  7. TYLENOL (CAPLET) [Concomitant]
     Dosage: UNKNOWN
  8. GABITRIL [Concomitant]
     Dosage: 0.4 MG, FREQUENCY UNKNOWN
  9. TRAZODONE HCL [Concomitant]
     Dosage: UNKNOWN
  10. ABILIFY [Concomitant]
     Indication: PSYCHOTIC DISORDER
     Route: 048
     Dates: start: 20070810
  11. LISINOPRIL [Concomitant]
     Dosage: UNKNOWN
  12. OS-CAL [Concomitant]
     Dosage: UNKNOWN
  13. DILANTIN [Suspect]
     Indication: CONVULSION
     Dosage: UNKNOWN
  14. CYCLOBENZAPRINE HCL [Concomitant]
     Dosage: UNKNOWN

REACTIONS (1)
  - IDIOPATHIC PULMONARY FIBROSIS [None]
